FAERS Safety Report 5658340-4 (Version None)
Quarter: 2008Q1

REPORT INFORMATION
  Report Type: 
  Country: None (occurrence: None)
  Receive Date: 20080310
  Receipt Date: 20070129
  Transmission Date: 20080703
  Serious: No
  Sender: FDA-Public Use
  Company Number: US-BAYER-200710322BCC

PATIENT
  Sex: Female
  Weight: 77 kg

DRUGS (3)
  1. ALEVE [Suspect]
     Indication: BACK PAIN
     Dosage: TOTAL DAILY DOSE: 220 MG  UNIT DOSE: 220 MG
     Route: 048
  2. ALDOMET [Interacting]
     Indication: HYPERTENSION
  3. LISINOPRIL [Interacting]
     Indication: HYPERTENSION

REACTIONS (1)
  - HYPERTENSION [None]
